FAERS Safety Report 21041325 (Version 1)
Quarter: 2022Q3

REPORT INFORMATION
  Report Type: Report from Study
  Country: IL (occurrence: IL)
  Receive Date: 20220705
  Receipt Date: 20220705
  Transmission Date: 20221027
  Serious: Yes (Disabling, Other)
  Sender: FDA-Public Use
  Company Number: IL-NOVARTISPH-NVSC2021IL268457

PATIENT
  Age: 9 Year
  Sex: Female
  Weight: 44 kg

DRUGS (10)
  1. TRAMETINIB [Suspect]
     Active Substance: TRAMETINIB
     Indication: Optic glioma
     Dosage: 1 MG
     Route: 065
     Dates: start: 20210515, end: 20210914
  2. TRAMETINIB [Suspect]
     Active Substance: TRAMETINIB
     Indication: Neurofibromatosis
     Dosage: 1 MG
     Route: 048
     Dates: start: 20210513, end: 20220412
  3. TRAMETINIB [Suspect]
     Active Substance: TRAMETINIB
     Indication: Glioma
     Dosage: UNK
     Route: 065
     Dates: start: 202107, end: 20220412
  4. TRAMETINIB [Suspect]
     Active Substance: TRAMETINIB
     Dosage: 0.5 MG
     Route: 065
     Dates: start: 20210925
  5. TRAMETINIB [Suspect]
     Active Substance: TRAMETINIB
     Dosage: UNK( 0.5 MG TO 1MG ALTRENATE )
     Route: 065
     Dates: start: 20211029
  6. TRAMETINIB [Suspect]
     Active Substance: TRAMETINIB
     Dosage: UNK (NOV)
     Route: 065
  7. ENALAPRIL [Concomitant]
     Active Substance: ENALAPRIL
     Indication: Blood pressure increased
     Dosage: 5 MG, BID
     Route: 065
     Dates: start: 20210815
  8. NORVASC [Concomitant]
     Active Substance: AMLODIPINE BESYLATE
     Indication: Blood pressure increased
     Dosage: UNK
     Route: 065
  9. CLONIDINE [Concomitant]
     Active Substance: CLONIDINE
     Indication: Blood pressure increased
     Dosage: UNK
     Route: 065
  10. LOSARTAN [Concomitant]
     Active Substance: LOSARTAN
     Indication: Blood pressure increased
     Dosage: UNK
     Route: 065
     Dates: start: 202205

REACTIONS (5)
  - Oedema peripheral [Not Recovered/Not Resolved]
  - Paronychia [Not Recovered/Not Resolved]
  - Cellulitis [Unknown]
  - Pain [Unknown]
  - Rash pustular [Unknown]

NARRATIVE: CASE EVENT DATE: 20210715
